FAERS Safety Report 8156994-4 (Version None)
Quarter: 2012Q1

REPORT INFORMATION
  Report Type: 
  Country: None (occurrence: None)
  Receive Date: 20120208
  Receipt Date: 20120124
  Transmission Date: 20120608
  Serious: Yes (Other)
  Sender: FDA-Public Use
  Company Number: 2010027079

PATIENT
  Age: 56 Year
  Sex: Female
  Weight: 47.6277 kg

DRUGS (32)
  1. HIZENTRA [Suspect]
  2. AUGMENTIN [Concomitant]
  3. PREDNISONE TAB [Concomitant]
  4. PROVENTIL [Concomitant]
  5. OMEPRAZOLE [Concomitant]
  6. PHENYTOIN [Concomitant]
  7. CALCIUM WITH VITAMIN D (CALCIUM WITH VITAMIN D) [Concomitant]
  8. HIZENTRA [Suspect]
  9. FLONASE [Concomitant]
  10. MUCINEX [Concomitant]
  11. HIZENTRA [Suspect]
  12. HIZENTRA [Suspect]
  13. VICODIN (VICODNI) [Concomitant]
  14. LEVAQUIN [Concomitant]
  15. HIZENTRA [Suspect]
  16. HIZENTRA [Suspect]
  17. HIZENTRA [Suspect]
  18. DUONEB [Concomitant]
  19. AZITHROMYCIN [Concomitant]
  20. HIZENTRA [Suspect]
     Indication: IMMUNODEFICIENCY COMMON VARIABLE
     Dosage: SEE IMAGE
     Route: 058
     Dates: start: 20101201
  21. HIZENTRA [Suspect]
     Indication: IMMUNODEFICIENCY COMMON VARIABLE
     Dosage: SEE IMAGE
     Route: 058
     Dates: start: 20110630
  22. HIZENTRA [Suspect]
     Indication: IMMUNODEFICIENCY COMMON VARIABLE
     Dosage: SEE IMAGE
     Route: 058
     Dates: start: 20120120, end: 20120120
  23. HIZENTRA [Suspect]
     Indication: IMMUNODEFICIENCY COMMON VARIABLE
     Dosage: SEE IMAGE
     Route: 058
     Dates: start: 20110728, end: 20110728
  24. HIZENTRA [Suspect]
     Indication: IMMUNODEFICIENCY COMMON VARIABLE
     Dosage: SEE IMAGE
     Route: 058
     Dates: start: 20110630
  25. HIZENTRA [Suspect]
  26. PHENOBARBITAL TAB [Concomitant]
  27. FORTEO [Concomitant]
  28. ALBUTEROL SULFATE [Concomitant]
  29. COUMADIN [Concomitant]
  30. HIZENTRA [Suspect]
  31. PULMICORT [Concomitant]
  32. THEOPHYLLINE [Concomitant]

REACTIONS (8)
  - INFUSION SITE REACTION [None]
  - LUNG INFECTION [None]
  - HEADACHE [None]
  - INFUSION SITE IRRITATION [None]
  - BRONCHITIS [None]
  - CONTUSION [None]
  - UPPER RESPIRATORY TRACT INFECTION [None]
  - INFUSION SITE MASS [None]
